FAERS Safety Report 7082956-4 (Version None)
Quarter: 2010Q4

REPORT INFORMATION
  Report Type: 
  Country: None (occurrence: None)
  Receive Date: 20101026
  Receipt Date: 20101013
  Transmission Date: 20110411
  Serious: Yes (Other)
  Sender: FDA-Public Use
  Company Number: TCI2010A04342

PATIENT
  Age: 39 Year
  Sex: Female

DRUGS (16)
  1. ROZEREM [Suspect]
     Indication: INSOMNIA
     Dosage: 8 MG (8 MG,1 IN 1 D) PER ORAL
     Route: 048
     Dates: start: 20100914, end: 20100929
  2. LANSOPRAZOLE [Suspect]
     Dosage: 26 TAB. (26 TAB.,1 D) PER ORAL
     Route: 048
     Dates: start: 20010828, end: 20100828
  3. LEXOTAN (BROMAZEPAM) [Suspect]
     Dosage: 10 MG (10 MG,1 D) PER ORAL ; 1165 MG (1165 MG,1 D) PER ORAL ; 5 MG (5 MG,1 IN 1 D) PER ORAL
     Route: 048
     Dates: start: 20060117, end: 20100827
  4. LEXOTAN (BROMAZEPAM) [Suspect]
     Dosage: 10 MG (10 MG,1 D) PER ORAL ; 1165 MG (1165 MG,1 D) PER ORAL ; 5 MG (5 MG,1 IN 1 D) PER ORAL
     Route: 048
     Dates: start: 20100828, end: 20100828
  5. LEXOTAN (BROMAZEPAM) [Suspect]
     Dosage: 10 MG (10 MG,1 D) PER ORAL ; 1165 MG (1165 MG,1 D) PER ORAL ; 5 MG (5 MG,1 IN 1 D) PER ORAL
     Route: 048
     Dates: start: 20100831
  6. RHYTHMY (RILMAZAFONE) [Concomitant]
  7. DOGMATYL (SULPIRIDE) [Concomitant]
  8. MAGNESIUM OXIDE [Concomitant]
  9. PURSENNIDE (SENNA ALEXANDRINA LEAF) [Concomitant]
  10. SG (PYRAZOLONES) [Concomitant]
  11. DORAL [Concomitant]
  12. ZOLPIDEM TARTRATE [Concomitant]
  13. ROHYPNOL (FLUNITRAZEPAM) [Concomitant]
  14. GASCON (DIMETICONE) [Concomitant]
  15. SELBEX (TEPRENONE) [Concomitant]
  16. LENDORM [Concomitant]

REACTIONS (9)
  - ASTHENIA [None]
  - BLOOD CREATINE PHOSPHOKINASE INCREASED [None]
  - CONDITION AGGRAVATED [None]
  - GAIT DISTURBANCE [None]
  - HYPOAESTHESIA [None]
  - INSOMNIA [None]
  - MULTIPLE DRUG OVERDOSE [None]
  - OEDEMA PERIPHERAL [None]
  - RHABDOMYOLYSIS [None]
